FAERS Safety Report 25455107 (Version 1)
Quarter: 2025Q2

REPORT INFORMATION
  Report Type: Spontaneous
  Country: NL (occurrence: NL)
  Receive Date: 20250619
  Receipt Date: 20250619
  Transmission Date: 20250716
  Serious: Yes (Hospitalization)
  Sender: CHEPLAPHARM
  Company Number: None

PATIENT
  Age: 25 Year
  Sex: Female
  Weight: 47 kg

DRUGS (4)
  1. QUETIAPINE [Suspect]
     Active Substance: QUETIAPINE
     Indication: Anorexia nervosa
     Dosage: 1DD1. THE PATIENT USES SEROQUEL 50 MG MGA, 100 MG FO, 300 MG MGA ALTERNATELY
     Route: 048
     Dates: start: 20230301
  2. QUETIAPINE [Suspect]
     Active Substance: QUETIAPINE
     Indication: Depression
     Dosage: 1DD1. THE PATIENT USES SEROQUEL 50 MG MGA, 100 MG FO, 300 MG MGA ALTERNATELY
     Route: 048
     Dates: start: 20230301
  3. CLOMIPRAMINE [Suspect]
     Active Substance: CLOMIPRAMINE
     Indication: Depression
     Dosage: 1DD2?DAILY DOSE: 150 MILLIGRAM
     Route: 048
     Dates: start: 20230301
  4. LORAZEPAM [Concomitant]
     Active Substance: LORAZEPAM
     Route: 048

REACTIONS (3)
  - Hypokalaemia [Recovering/Resolving]
  - Symptom recurrence [Recovering/Resolving]
  - Self-medication [Unknown]
